FAERS Safety Report 21537018 (Version 10)
Quarter: 2023Q2

REPORT INFORMATION
  Report Type: Spontaneous
  Country: US (occurrence: US)
  Receive Date: 20221101
  Receipt Date: 20230531
  Transmission Date: 20230722
  Serious: Yes (Death, Hospitalization, Other)
  Sender: FDA-Public Use
  Company Number: US-PFIZER INC-PV202200093062

PATIENT
  Age: 85 Year
  Sex: Female

DRUGS (1)
  1. IBRANCE [Suspect]
     Active Substance: PALBOCICLIB
     Indication: Breast cancer female
     Dosage: 75 MG

REACTIONS (6)
  - Death [Fatal]
  - Illness [Unknown]
  - Kidney infection [Unknown]
  - Gait inability [Not Recovered/Not Resolved]
  - Thyroid hormones decreased [Unknown]
  - Malaise [Unknown]
